FAERS Safety Report 11757616 (Version 1)
Quarter: 2015Q4

REPORT INFORMATION
  Report Type: Report from Study
  Country: BR (occurrence: BR)
  Receive Date: 20151120
  Receipt Date: 20151120
  Transmission Date: 20160304
  Serious: Yes (Other)
  Sender: FDA-Public Use
  Company Number: PHHY2015BR151499

PATIENT
  Sex: Male
  Weight: 110 kg

DRUGS (1)
  1. DIOVAN HCT [Suspect]
     Active Substance: HYDROCHLOROTHIAZIDE\VALSARTAN
     Indication: HYPERTENSION
     Dosage: 1 DF (VALSARTAN 160MG AND HYDROCHOLOROTHIAZIDE 12.5MG), QD
     Route: 048

REACTIONS (2)
  - Intraocular pressure increased [Unknown]
  - Glaucoma [Unknown]
